APPROVED DRUG PRODUCT: APADAZ
Active Ingredient: ACETAMINOPHEN; BENZHYDROCODONE HYDROCHLORIDE
Strength: 325MG;EQ 8.16MG BASE
Dosage Form/Route: TABLET;ORAL
Application: N208653 | Product #003
Applicant: ZEVRA THERAPEUTICS
Approved: Jan 4, 2019 | RLD: Yes | RS: No | Type: DISCN

PATENTS:
Patent 9132125 | Expires: Jul 1, 2030
Patent 8828978 | Expires: Jul 1, 2030
Patent 9549923 | Expires: Jul 1, 2030
Patent 8461137 | Expires: Feb 22, 2031
Patent 8748413 | Expires: Jul 1, 2030